FAERS Safety Report 7165661-5 (Version None)
Quarter: 2010Q4

REPORT INFORMATION
  Report Type: 
  Country: None (occurrence: None)
  Receive Date: 20101215
  Receipt Date: 20100104
  Transmission Date: 20110411
  Serious: No
  Sender: FDA-Public Use
  Company Number: US-AMGEN-KDL383573

PATIENT

DRUGS (3)
  1. ENBREL [Suspect]
     Indication: RHEUMATOID ARTHRITIS
     Dosage: 50 MG, QWK
     Route: 058
     Dates: start: 20040701
  2. LEFLUNOMIDE [Concomitant]
     Dosage: 10 MG, QD
     Route: 048
     Dates: start: 20091001
  3. METHOTREXATE [Concomitant]

REACTIONS (3)
  - FALL [None]
  - RHEUMATOID ARTHRITIS [None]
  - SKIN LACERATION [None]
